FAERS Safety Report 5428705-4 (Version None)
Quarter: 2007Q3

REPORT INFORMATION
  Report Type: 
  Country: None (occurrence: None)
  Receive Date: 20070828
  Receipt Date: 20070820
  Transmission Date: 20080115
  Serious: No
  Sender: FDA-Public Use
  Company Number: GB-SHR-GB-2007-022932

PATIENT
  Age: 51 Year
  Sex: Female

DRUGS (1)
  1. MAGNEVIST [Suspect]
     Dosage: 40 ML, 1 DOSE
     Dates: start: 20060905, end: 20060905

REACTIONS (1)
  - NO ADVERSE REACTION [None]
